FAERS Safety Report 13545949 (Version 1)
Quarter: 2017Q2

REPORT INFORMATION
  Report Type: Spontaneous
  Country: US (occurrence: US)
  Receive Date: 20170515
  Receipt Date: 20170515
  Transmission Date: 20170830
  Serious: Yes (Hospitalization, Other)
  Sender: FDA-Public Use
  Company Number: US-PFIZER INC-2016471928

PATIENT
  Age: 56 Year
  Sex: Female
  Weight: 74.39 kg

DRUGS (2)
  1. SKELAXIN [Suspect]
     Active Substance: METAXALONE
     Dosage: UNK
     Dates: start: 2015
  2. SKELAXIN [Suspect]
     Active Substance: METAXALONE
     Indication: MUSCLE SPASMS
     Dosage: 800 MG, 4X/DAY
     Dates: start: 2002

REACTIONS (6)
  - Neck pain [Unknown]
  - Pneumonia [Unknown]
  - Cardiac failure congestive [Unknown]
  - Weight increased [Unknown]
  - Body height decreased [Unknown]
  - Dyspnoea [Unknown]

NARRATIVE: CASE EVENT DATE: 2017
